FAERS Safety Report 9887701 (Version 1)
Quarter: 2014Q1

REPORT INFORMATION
  Report Type: Spontaneous
  Country: AT (occurrence: AT)
  Receive Date: 20140211
  Receipt Date: 20140211
  Transmission Date: 20141002
  Serious: Yes (Hospitalization)
  Sender: FDA-Public Use
  Company Number: AT-JNJFOC-20140202543

PATIENT
  Age: 15 Year
  Sex: Female

DRUGS (1)
  1. RISPERDAL ORAL [Suspect]
     Indication: PRODUCT USED FOR UNKNOWN INDICATION
     Dosage: 43 ML 1 TIMES IN 1 TOTAL
     Route: 048
     Dates: start: 20110111, end: 20110111

REACTIONS (2)
  - Accidental overdose [Recovered/Resolved]
  - Dizziness [Recovered/Resolved]
